FAERS Safety Report 7618488-1 (Version None)
Quarter: 2011Q3

REPORT INFORMATION
  Report Type: 
  Country: None (occurrence: None)
  Receive Date: 20110718
  Receipt Date: 20090413
  Transmission Date: 20111222
  Serious: No
  Sender: FDA-Public Use
  Company Number: US-PFIZER INC-2009199835

PATIENT
  Sex: Male
  Weight: 85.7 kg

DRUGS (1)
  1. CAVERJECT [Suspect]
     Dates: start: 20090101

REACTIONS (1)
  - ERECTILE DYSFUNCTION [None]
